FAERS Safety Report 23145474 (Version 1)
Quarter: 2023Q4

REPORT INFORMATION
  Report Type: Spontaneous
  Country: FR (occurrence: FR)
  Receive Date: 20231103
  Receipt Date: 20231103
  Transmission Date: 20240109
  Serious: Yes (Hospitalization)
  Sender: FDA-Public Use
  Company Number: None

PATIENT
  Age: 19 Year
  Sex: Female
  Weight: 66 kg

DRUGS (2)
  1. FLURBIPROFEN [Suspect]
     Active Substance: FLURBIPROFEN
     Indication: Dysmenorrhoea
     Dosage: 1 TSP IF NEEDED, FORM STRENGTH AND UNIT DOSE: 100MILLIGRAM, DURATION: 54DAYS
     Route: 048
     Dates: start: 20230718, end: 20230910
  2. IBUPROFEN [Suspect]
     Active Substance: IBUPROFEN
     Indication: Ligament sprain
     Dosage: FORM STRENGTH: 200MILLIGRAM, 200MG/DAY ON 09/11 AND 09/12 THEN 200MG PER WEEK, THERAPY DURATION: 18D
     Route: 048
     Dates: start: 20230911, end: 20230929

REACTIONS (1)
  - Acute kidney injury [Recovered/Resolved]

NARRATIVE: CASE EVENT DATE: 20230926
